FAERS Safety Report 8622835-1 (Version None)
Quarter: 2012Q3

REPORT INFORMATION
  Report Type: 
  Country: None (occurrence: None)
  Receive Date: 20120827
  Receipt Date: 20120821
  Transmission Date: 20120928
  Serious: Yes (Other)
  Sender: FDA-Public Use
  Company Number: PHEH2012US016551

PATIENT
  Sex: Female

DRUGS (1)
  1. GILENYA [Suspect]
     Indication: MULTIPLE SCLEROSIS
     Dosage: 0.5 MG, QD
     Route: 048
     Dates: start: 20120821, end: 20120821

REACTIONS (7)
  - ERYTHEMA [None]
  - PRURITUS [None]
  - SINUS BRADYCARDIA [None]
  - SLUGGISHNESS [None]
  - LIP SWELLING [None]
  - MICTURITION URGENCY [None]
  - DIZZINESS [None]
